FAERS Safety Report 19908998 (Version 1)
Quarter: 2021Q4

REPORT INFORMATION
  Report Type: Spontaneous
  Country: US (occurrence: US)
  Receive Date: 20211001
  Receipt Date: 20211001
  Transmission Date: 20220303
  Serious: No
  Sender: FDA-Public Use
  Company Number: US-AMARIN PHARMA, INC.-2020AMR000733

PATIENT
  Sex: Female

DRUGS (2)
  1. VASCEPA [Suspect]
     Active Substance: ICOSAPENT ETHYL
     Indication: Product used for unknown indication
     Dates: start: 202007
  2. VASCEPA [Suspect]
     Active Substance: ICOSAPENT ETHYL

REACTIONS (4)
  - Paraesthesia oral [Unknown]
  - Lip pruritus [Unknown]
  - Increased appetite [Unknown]
  - Underdose [Unknown]
